FAERS Safety Report 24787823 (Version 1)
Quarter: 2024Q4

REPORT INFORMATION
  Report Type: Spontaneous
  Country: US (occurrence: US)
  Receive Date: 20241230
  Receipt Date: 20241230
  Transmission Date: 20250114
  Serious: Yes (Death, Other)
  Sender: ALKEM
  Company Number: US-ALKEM LABORATORIES LIMITED-US-ALKEM-2024-26445

PATIENT
  Age: 60 Year
  Sex: Female

DRUGS (8)
  1. MYCOPHENOLATE MOFETIL [Suspect]
     Active Substance: MYCOPHENOLATE MOFETIL
     Indication: Systemic scleroderma
     Dosage: UNK
     Route: 065
  2. METHYLPREDNISOLONE [Suspect]
     Active Substance: METHYLPREDNISOLONE
     Indication: Immunosuppressant drug therapy
     Dosage: 1 MILLIGRAM/KILOGRAM
     Route: 042
  3. CYCLOPHOSPHAMIDE [Suspect]
     Active Substance: CYCLOPHOSPHAMIDE
     Indication: Systemic scleroderma
     Dosage: 50 MILLIGRAM/KILOGRAM, QD ((DAYS -5 TO -2, TOTAL DOSE 200 MG/KG))
     Route: 042
  4. CYCLOPHOSPHAMIDE [Suspect]
     Active Substance: CYCLOPHOSPHAMIDE
     Indication: Immunosuppressant drug therapy
  5. EQUINE THYMOCYTE IMMUNE GLOBULIN [Suspect]
     Active Substance: EQUINE THYMOCYTE IMMUNE GLOBULIN
     Indication: Immunosuppressant drug therapy
     Dosage: 15 MILLIGRAM/KILOGRAM, QD (DAYS -5, -3, -1, PLUS 1, PLUS 3, PLUS 5))
     Route: 065
  6. PREDNISONE [Suspect]
     Active Substance: PREDNISONE
     Indication: Immunosuppressant drug therapy
     Dosage: 0.5 MILLIGRAM/KILOGRAM, QD
     Route: 065
  7. FILGRASTIM [Concomitant]
     Active Substance: FILGRASTIM
     Indication: Product used for unknown indication
     Dosage: 16 MICROGRAM/KILOGRAM, QD
     Route: 058
  8. LISINOPRIL [Concomitant]
     Active Substance: LISINOPRIL
     Indication: Blood pressure systolic
     Dosage: UNK
     Route: 065

REACTIONS (5)
  - Acute respiratory failure [Fatal]
  - Cardiac arrest [Fatal]
  - Sepsis [Fatal]
  - Cytomegalovirus infection reactivation [Recovered/Resolved]
  - Treatment failure [Unknown]
